FAERS Safety Report 10594400 (Version 1)
Quarter: 2014Q4

REPORT INFORMATION
  Report Type: Spontaneous
  Country: US (occurrence: US)
  Receive Date: 20141119
  Receipt Date: 20141119
  Transmission Date: 20150529
  Serious: No
  Sender: FDA-Public Use
  Company Number: US-TEVA-523181USA

PATIENT
  Sex: Female
  Weight: 98.06 kg

DRUGS (1)
  1. COPAXONE [Suspect]
     Active Substance: GLATIRAMER ACETATE
     Indication: RELAPSING-REMITTING MULTIPLE SCLEROSIS
     Dates: start: 2000

REACTIONS (4)
  - Palpitations [Recovered/Resolved]
  - Fear [Recovered/Resolved]
  - Flushing [Recovered/Resolved]
  - Listless [Recovered/Resolved]
